FAERS Safety Report 4570456-2 (Version None)
Quarter: 2005Q1

REPORT INFORMATION
  Report Type: 
  Country: None (occurrence: None)
  Receive Date: 20050204
  Receipt Date: 20050124
  Transmission Date: 20050727
  Serious: Yes (Other)
  Sender: FDA-Public Use
  Company Number: GB-JNJFOC-20050101647

PATIENT
  Sex: Male
  Weight: 40 kg

DRUGS (2)
  1. RISPERDAL [Suspect]
     Indication: DISTURBANCE IN SOCIAL BEHAVIOUR
     Route: 049
  2. DEXAMPHETAMINE [Concomitant]

REACTIONS (1)
  - NEUTROPENIA [None]
